FAERS Safety Report 6634178-6 (Version None)
Quarter: 2010Q1

REPORT INFORMATION
  Report Type: 
  Country: None (occurrence: None)
  Receive Date: 20100309
  Receipt Date: 20100223
  Transmission Date: 20100710
  Serious: Yes (Hospitalization)
  Sender: FDA-Public Use
  Company Number: DSM-2010-00267

PATIENT
  Age: 70 Year
  Sex: Male

DRUGS (10)
  1. OLMESARTAN MEDOXOMIL [Suspect]
     Indication: HYPERTENSION
     Dosage: ORAL
     Route: 048
     Dates: end: 20091030
  2. RASILEZ (ALISKIREN) (150 MILLIGRAM) [Suspect]
     Indication: DRUG USE FOR UNKNOWN INDICATION
     Dosage: 150 MG (150 MG, 1 IN 1 D), ORAL
     Route: 048
     Dates: start: 20091012, end: 20091030
  3. BUMETANIDE [Suspect]
     Indication: DRUG USE FOR UNKNOWN INDICATION
     Dosage: ORAL
     Route: 048
     Dates: end: 20091030
  4. TERALITHE LP (LITHIUM CARBONATE) (400 MILLIGRAM, TABLET) (LITHIUM CARB [Suspect]
     Indication: DRUG USE FOR UNKNOWN INDICATION
     Dosage: 800 MG (400 MG, 2 IN 1 D), ORAL
     Route: 048
     Dates: end: 20091030
  5. FLECAINE LP (FLECAINIDE ACETATE) (FLECAINIDE ACETATE) [Concomitant]
  6. SINTROM (ACENOCOUMAROL) (ACENOCOUMAROL) [Concomitant]
  7. EUPRESSYL (URAPIDIL) (URAPIDIL) [Concomitant]
  8. LEVOTHYROX (LEVOTHYROXINE SODIUM) (LEVOTHYROXINE SODIUM) [Concomitant]
  9. NOVORAPID (INSULIN ASPART) (INSULIN ASPART) [Concomitant]
  10. LANTUS (INSULIN GLARGINE) (INSUILIN GLARGINE) [Concomitant]

REACTIONS (6)
  - ANTIPSYCHOTIC DRUG LEVEL INCREASED [None]
  - DEHYDRATION [None]
  - HAEMODIALYSIS [None]
  - OVERDOSE [None]
  - RENAL FAILURE ACUTE [None]
  - TREMOR [None]
